FAERS Safety Report 16580977 (Version 1)
Quarter: 2019Q3

REPORT INFORMATION
  Report Type: Spontaneous
  Country: FI (occurrence: FI)
  Receive Date: 20190716
  Receipt Date: 20190716
  Transmission Date: 20191004
  Serious: Yes (Other)
  Sender: FDA-Public Use
  Company Number: FI-TEVA-2019-FI-1077882

PATIENT
  Age: 19 Year
  Sex: Female

DRUGS (7)
  1. TAMOXIFENE [Suspect]
     Active Substance: TAMOXIFEN
     Indication: DESMOID TUMOUR
     Dosage: 40 MILLIGRAM DAILY;
     Route: 065
  2. TOREMIFEN [Suspect]
     Active Substance: TOREMIFENE
     Indication: DESMOID TUMOUR
     Dosage: 180 MILLIGRAM DAILY;
     Route: 065
  3. LETROZOLE. [Suspect]
     Active Substance: LETROZOLE
     Indication: DESMOID TUMOUR
     Dosage: 2.5 MILLIGRAM DAILY;
     Route: 065
  4. PEGYLATED LIPOSOMAL DOXORUBICIN [Suspect]
     Active Substance: DOXORUBICIN
     Indication: DESMOID TUMOUR
     Dosage: 50 MG/M2 DAILY; ON DAYS 1 AND 8 OF EVERY 21 DAYS CYCLE
     Route: 065
  5. GOSERELIN [Suspect]
     Active Substance: GOSERELIN
     Indication: DESMOID TUMOUR
     Route: 065
  6. RIBOCICLIB. [Suspect]
     Active Substance: RIBOCICLIB
     Indication: DESMOID TUMOUR
     Dosage: 600 MILLIGRAM DAILY; 600MG ONCE A DAY (3 WEEKS ON/1WEEK OFF)
     Route: 065
     Dates: start: 201701, end: 2017
  7. VINORELBINE [Suspect]
     Active Substance: VINORELBINE TARTRATE
     Indication: DESMOID TUMOUR
     Dosage: ON DAYS 1 AND 8 OF EVERY 21 DAYS CYCLE
     Route: 048

REACTIONS (7)
  - Dermatitis acneiform [Unknown]
  - Stomatitis [Unknown]
  - Paraesthesia [Unknown]
  - Fatigue [Unknown]
  - Drug ineffective [Unknown]
  - Acute promyelocytic leukaemia [Recovering/Resolving]
  - Rash vesicular [Unknown]

NARRATIVE: CASE EVENT DATE: 2017
